FAERS Safety Report 8105754-9 (Version None)
Quarter: 2012Q1

REPORT INFORMATION
  Report Type: 
  Country: None (occurrence: None)
  Receive Date: 20120201
  Receipt Date: 20120125
  Transmission Date: 20120608
  Serious: Yes (Life-Threatening, Hospitalization, Other)
  Sender: FDA-Public Use
  Company Number: US-RB-036294-12

PATIENT
  Age: 58 Year
  Sex: Female

DRUGS (7)
  1. ZOLOFT [Concomitant]
     Indication: DEPRESSION
     Dosage: UNKNOWN
     Route: 065
  2. SUBUTEX [Suspect]
     Indication: DRUG DEPENDENCE
     Dosage: UNKNOWN
     Route: 060
     Dates: start: 20110801, end: 20110801
  3. SUBOXONE [Suspect]
     Indication: DRUG DEPENDENCE
     Route: 060
     Dates: start: 20111001
  4. METHADONE HCL [Suspect]
     Indication: PRODUCT USED FOR UNKNOWN INDICATION
     Dosage: UNKNOWN
     Route: 048
     Dates: start: 20110901, end: 20110901
  5. BENZODIAZEPINES [Suspect]
     Indication: ANXIETY
     Dosage: UNKNOWN
     Route: 048
     Dates: start: 20110901, end: 20110901
  6. SEROQUEL [Suspect]
     Indication: ANXIETY
     Dosage: UNKNOWN
     Route: 048
     Dates: start: 20120101, end: 20120101
  7. BENZODIAZEPINES (UNKNOWN) [Concomitant]
     Indication: ANXIETY DISORDER
     Dosage: UNKNOWN
     Route: 065

REACTIONS (8)
  - INSOMNIA [None]
  - HALLUCINATION, AUDITORY [None]
  - OFF LABEL USE [None]
  - PAIN [None]
  - SUICIDE ATTEMPT [None]
  - CRYING [None]
  - HALLUCINATION, VISUAL [None]
  - MALAISE [None]
